FAERS Safety Report 4947044-9 (Version None)
Quarter: 2006Q1

REPORT INFORMATION
  Report Type: 
  Country: None (occurrence: None)
  Receive Date: 20060317
  Receipt Date: 20060313
  Transmission Date: 20060701
  Serious: Yes (Death)
  Sender: FDA-Public Use
  Company Number: US-BRISTOL-MYERS SQUIBB COMPANY-13312996

PATIENT
  Age: 30 Year
  Sex: Female

DRUGS (5)
  1. GLUCOPHAGE [Suspect]
  2. LYRICA [Concomitant]
  3. ZOLOFT [Concomitant]
  4. PREVACID [Concomitant]
  5. NEURONTIN [Concomitant]

REACTIONS (1)
  - DEATH [None]
